FAERS Safety Report 8882452 (Version 1)
Quarter: 2012Q4

REPORT INFORMATION
  Report Type: 
  Country: CO (occurrence: US)
  Receive Date: 20121103
  Receipt Date: 20121103
  Transmission Date: 20130627
  Serious: Yes (Hospitalization, Other)
  Sender: FDA-Public Use
  Company Number: US-009507513-2012SP024559

PATIENT
  Age: 52 Year
  Sex: Female
  Weight: 81.65 kg

DRUGS (24)
  1. TEMODAR [Suspect]
     Indication: OVARIAN CANCER
     Dosage: DAYS 1 THROUGH 5 OF EACH 28 DAY CYCLE
     Route: 048
     Dates: start: 20100401, end: 20100410
  2. TEMODAR [Suspect]
     Dosage: DAYS 1 THROUGH 5 OF EACH 28 DAY CYCLE
     Route: 042
     Dates: start: 20100430, end: 20110818
  3. VELIPARIB [Suspect]
     Indication: OVARIAN CANCER
     Dosage: DAYS 1 THROUGH 7 OF EACH 28 DAY CYCLE (40MG, 2 IN DAY)
     Route: 048
     Dates: start: 20100401, end: 20110914
  4. THYRAX [Concomitant]
     Indication: HYPOTHYROIDISM
     Dosage: UPDATE (04JUN2012)
     Dates: start: 1984, end: 20120406
  5. THYRAX [Concomitant]
     Dosage: 56 Microgram, qd
     Dates: start: 20120425
  6. THYRAX [Concomitant]
     Dosage: 112 Microgram, qd
     Dates: start: 20120407, end: 20120424
  7. MONTELUKAST SODIUM [Concomitant]
     Indication: ASTHMA
     Dosage: 10 mg, QD
     Dates: start: 1990
  8. ALBUTEROL [Concomitant]
     Indication: ASTHMA
     Dosage: 2 PUFF
     Dates: start: 1980
  9. MK-7013 [Concomitant]
     Indication: ASTHMA
     Dosage: 4 PUFF
     Dates: start: 2000
  10. POTASSIUM (UNSPECIFIED) [Concomitant]
     Indication: HYPOKALAEMIA
     Dosage: 8 meq, QD
     Dates: start: 2009
  11. SIMVASTATIN [Concomitant]
     Indication: BLOOD CHOLESTEROL INCREASED
     Dosage: 20 mg, QD
     Dates: start: 2009
  12. IBUPROFEN [Concomitant]
     Indication: MIGRAINE
     Dosage: 400 mg, PRN
     Dates: start: 2000
  13. IBUPROFEN [Concomitant]
     Dosage: 200 mg, prn
     Dates: start: 20100622, end: 20100924
  14. IBUPROFEN [Concomitant]
     Dosage: 800 mg, prn
     Dates: start: 20120924
  15. MINERALS (UNSPECIFIED) (+) VITAMINS (UNSPECIFIED) [Concomitant]
     Indication: MEDICAL DIET
     Dosage: 1 DF, QD
     Dates: start: 2009
  16. ECOTRIN [Concomitant]
     Indication: CARDIOVASCULAR EVENT PROPHYLAXIS
     Dosage: 81 mg, QD
     Dates: start: 20100712
  17. MAGNESIUM OXIDE [Concomitant]
     Indication: HYPOMAGNESAEMIA
     Dosage: 250 mg, prn
     Dates: start: 20100824, end: 20120406
  18. AZITHROMYCIN [Concomitant]
     Indication: BRONCHIECTASIS
     Dosage: 1 IN 30 Day
     Dates: start: 20100924
  19. AZITHROMYCIN [Concomitant]
     Dosage: 250 mg, prn
     Dates: start: 20100925
  20. GUAIFENESIN [Concomitant]
     Indication: COUGH
     Dosage: 1 DF, PRN
     Dates: start: 20100924
  21. MOMETASONE FUROATE [Concomitant]
     Indication: ASTHMA
     Dosage: 2 PUFF once a day
     Dates: start: 20100809
  22. TYLENOL [Suspect]
     Indication: PAIN PROPHYLAXIS
     Dosage: 500 mg, prn
     Route: 048
     Dates: start: 20120406, end: 20120412
  23. TYLENOL [Suspect]
     Indication: PAIN PROPHYLAXIS
  24. TYLENOL [Suspect]
     Indication: PAIN PROPHYLAXIS

REACTIONS (1)
  - Acute myeloid leukaemia [Unknown]
